FAERS Safety Report 9851208 (Version 3)
Quarter: 2014Q1

REPORT INFORMATION
  Report Type: Spontaneous
  Country: US (occurrence: US)
  Receive Date: 20140128
  Receipt Date: 20140217
  Transmission Date: 20141002
  Serious: Yes (Other)
  Sender: FDA-Public Use
  Company Number: US-RB-062816-14

PATIENT
  Age: 16 Year
  Sex: Male

DRUGS (1)
  1. DELSYM LIQUID UNKNOWN [Suspect]
     Indication: DRUG ABUSE
     Dosage: TOOK UNKNOWN AMOUNT ON 02-FEB-2014.
     Route: 048
     Dates: start: 20140202

REACTIONS (4)
  - Drug abuse [Recovered/Resolved]
  - Abdominal discomfort [Recovered/Resolved]
  - Insomnia [Recovered/Resolved]
  - Dizziness [Recovered/Resolved]
